FAERS Safety Report 16711508 (Version 1)
Quarter: 2019Q3

REPORT INFORMATION
  Report Type: Spontaneous
  Country: US (occurrence: US)
  Receive Date: 20190816
  Receipt Date: 20190816
  Transmission Date: 20191004
  Serious: No
  Sender: FDA-Public Use
  Company Number: US-SA-2019SA221508

PATIENT
  Sex: Female

DRUGS (16)
  1. FLUCONAZOLE. [Concomitant]
     Active Substance: FLUCONAZOLE
  2. MODAFINIL. [Concomitant]
     Active Substance: MODAFINIL
  3. ADDERALL [Concomitant]
     Active Substance: AMPHETAMINE ASPARTATE\AMPHETAMINE SULFATE\DEXTROAMPHETAMINE SACCHARATE\DEXTROAMPHETAMINE SULFATE
  4. ATORVASTATIN [Concomitant]
     Active Substance: ATORVASTATIN
  5. LEVOTHYROXINE. [Concomitant]
     Active Substance: LEVOTHYROXINE
  6. METOCLOPRAMIDE HCL [Concomitant]
     Active Substance: METOCLOPRAMIDE HYDROCHLORIDE
  7. AUBAGIO [Suspect]
     Active Substance: TERIFLUNOMIDE
     Dosage: 1 DF, QD
     Route: 048
     Dates: start: 201907
  8. GLATIRAMER [Concomitant]
     Active Substance: GLATIRAMER
  9. LINZESS [Concomitant]
     Active Substance: LINACLOTIDE
  10. AMLODIPINE [Concomitant]
     Active Substance: AMLODIPINE BESYLATE
  11. VITAMIN B12 [VITAMIN B12 NOS] [Concomitant]
     Active Substance: CYANOCOBALAMIN
  12. CYCLOBENZAPRIN [Concomitant]
     Active Substance: CYCLOBENZAPRINE
  13. OXYCODONE ACTAVIS [Concomitant]
     Active Substance: OXYCODONE HYDROCHLORIDE
  14. HYDROCODONE [Concomitant]
     Active Substance: HYDROCODONE
  15. LISINOPRIL. [Concomitant]
     Active Substance: LISINOPRIL
  16. NYSTOP [Concomitant]
     Active Substance: NYSTATIN

REACTIONS (1)
  - Protein total abnormal [Not Recovered/Not Resolved]

NARRATIVE: CASE EVENT DATE: 2019
